FAERS Safety Report 26125123 (Version 1)
Quarter: 2025Q4

REPORT INFORMATION
  Report Type: Spontaneous
  Country: EU (occurrence: EU)
  Receive Date: 20251205
  Receipt Date: 20251205
  Transmission Date: 20260117
  Serious: Yes (Death, Other)
  Sender: ACCORD
  Company Number: EU-Accord-516938

PATIENT
  Age: 65 Year
  Sex: Male

DRUGS (6)
  1. AZACITIDINE [Suspect]
     Active Substance: AZACITIDINE
     Indication: Chronic myeloid leukaemia
  2. VENETOCLAX [Suspect]
     Active Substance: VENETOCLAX
     Indication: Chronic myeloid leukaemia
  3. DASATINIB [Suspect]
     Active Substance: DASATINIB
     Indication: Chronic myeloid leukaemia
  4. AZACITIDINE [Suspect]
     Active Substance: AZACITIDINE
     Indication: Platelet-derived growth factor receptor gene mutation
  5. VENETOCLAX [Suspect]
     Active Substance: VENETOCLAX
     Indication: Platelet-derived growth factor receptor gene mutation
  6. DASATINIB [Suspect]
     Active Substance: DASATINIB
     Indication: Platelet-derived growth factor receptor gene mutation

REACTIONS (3)
  - Sepsis [Fatal]
  - Neutropenia [Fatal]
  - Multiple organ dysfunction syndrome [Fatal]
